FAERS Safety Report 7197627-3 (Version None)
Quarter: 2010Q4

REPORT INFORMATION
  Report Type: 
  Country: None (occurrence: None)
  Receive Date: 20101227
  Receipt Date: 20101215
  Transmission Date: 20110411
  Serious: Yes (Life-Threatening)
  Sender: FDA-Public Use
  Company Number: JP-SANOFI-AVENTIS-2010SA068827

PATIENT
  Age: 72 Year
  Sex: Male

DRUGS (5)
  1. ELPLAT [Suspect]
     Indication: COLON CANCER
     Route: 041
     Dates: start: 20090101, end: 20090101
  2. ELPLAT [Suspect]
     Route: 041
     Dates: start: 20090601, end: 20090601
  3. CALCIUM LEVOFOLINATE [Concomitant]
     Indication: COLON CANCER
     Route: 041
     Dates: start: 20090101, end: 20090601
  4. FLUOROURACIL [Concomitant]
     Indication: COLON CANCER
     Route: 040
     Dates: start: 20090101, end: 20090601
  5. FLUOROURACIL [Concomitant]
     Route: 041
     Dates: start: 20090101, end: 20090601

REACTIONS (1)
  - STRESS CARDIOMYOPATHY [None]
